FAERS Safety Report 6599794 (Version 4)
Quarter: 2014Q3

REPORT INFORMATION
  Report Type: Spontaneous
  Country: US (occurrence: US)
  Receive Date: 20080328
  Receipt Date: 20140804
  Transmission Date: 20150326
  Serious: Yes (Other)
  Sender: FDA-Public Use
  Company Number: US-BAYER-US-2007-020007

PATIENT
  Age: 37 Year
  Sex: Female
  Weight: 48.07 kg

DRUGS (2)
  1. MIRENA [Suspect]
     Active Substance: LEVONORGESTREL
     Dosage: 20 ?G/DAY, CONT
     Route: 015
     Dates: start: 20070122, end: 20120221
  2. XANAX [Concomitant]
     Active Substance: ALPRAZOLAM

REACTIONS (15)
  - Scar [None]
  - Injury [Recovered/Resolved]
  - Embedded device [Recovered/Resolved]
  - Pelvic pain [Recovered/Resolved]
  - Procedural pain [Recovered/Resolved]
  - Breast tenderness [Recovered/Resolved]
  - Abdominal pain lower [None]
  - Emotional distress [None]
  - Chills [Recovered/Resolved]
  - Device misuse [None]
  - Complication of device insertion [Recovered/Resolved]
  - Back pain [Recovered/Resolved]
  - Abdominal pain [Recovered/Resolved]
  - Amenorrhoea [Not Recovered/Not Resolved]
  - Vaginal haemorrhage [Recovered/Resolved]

NARRATIVE: CASE EVENT DATE: 20070530
